FAERS Safety Report 23518253 (Version 2)
Quarter: 2024Q1

REPORT INFORMATION
  Report Type: Spontaneous
  Country: CN (occurrence: CN)
  Receive Date: 20240213
  Receipt Date: 20240220
  Transmission Date: 20240410
  Serious: Yes (Hospitalization, Other)
  Sender: FDA-Public Use
  Company Number: CN-MLMSERVICE-20240205-4817922-1

PATIENT
  Age: 55 Year
  Sex: Female
  Weight: 61 kg

DRUGS (6)
  1. PACLITAXEL [Suspect]
     Active Substance: PACLITAXEL
     Indication: Squamous cell carcinoma of the cervix
     Dosage: 300 MG, CYCLIC(IVD D1, 1,2,4,5 TH CYCLES)
     Route: 042
     Dates: start: 20211202, end: 202201
  2. PACLITAXEL [Suspect]
     Active Substance: PACLITAXEL
     Dosage: 300 MG IVD ON DAY 1
     Route: 042
     Dates: start: 20220209, end: 20220303
  3. CAMRELIZUMAB [Concomitant]
     Active Substance: CAMRELIZUMAB
     Indication: Squamous cell carcinoma of the cervix
     Dosage: 200 MG, CYCLIC (IVD D1) IN EVERY 21 DAYS
     Route: 042
     Dates: start: 20211202, end: 20220303
  4. CAMRELIZUMAB [Concomitant]
     Active Substance: CAMRELIZUMAB
     Indication: Metastases to bone
  5. CISPLATIN [Concomitant]
     Active Substance: CISPLATIN
     Indication: Metastatic squamous cell carcinoma
     Dosage: 30 MG, CYCLIC (IVD D1)
     Route: 042
     Dates: start: 20211202, end: 20220303
  6. CISPLATIN [Concomitant]
     Active Substance: CISPLATIN
     Indication: Metastases to bone
     Dosage: 50 MG, CYCLIC (IVD D2)
     Route: 042
     Dates: start: 20211202, end: 20220303

REACTIONS (1)
  - Bone pain [Recovered/Resolved]

NARRATIVE: CASE EVENT DATE: 20211226
